FAERS Safety Report 19884429 (Version 3)
Quarter: 2021Q4

REPORT INFORMATION
  Report Type: Report from Study
  Country: AT (occurrence: AT)
  Receive Date: 20210927
  Receipt Date: 20211008
  Transmission Date: 20220303
  Serious: Yes (Hospitalization)
  Sender: FDA-Public Use
  Company Number: AT-ROCHE-2917519

PATIENT
  Age: 58 Year
  Sex: Female
  Weight: 84 kg

DRUGS (8)
  1. ATEZOLIZUMAB [Suspect]
     Active Substance: ATEZOLIZUMAB
     Indication: HER2 positive breast cancer
     Dosage: LAST ADMINISTRATION DOSE (1200 MG) PRIOR TO SAE ONSET ON 05/JUL/2021 (CYCLE 6)
     Route: 042
     Dates: start: 20210322
  2. PERTUZUMAB [Suspect]
     Active Substance: PERTUZUMAB
     Indication: HER2 positive breast cancer
     Dosage: LAST ADMINISTRATION DOSE (420MG) PRIOR TO SAE ONSET ON 05/JUL/2021 (CYCLE 6)
     Route: 042
     Dates: start: 20210322
  3. TRASTUZUMAB [Suspect]
     Active Substance: TRASTUZUMAB
     Indication: HER2 positive breast cancer
     Dosage: LAST ADMINISTRATION DOSE (516 MG) PRIOR TO SAE ONSET ON 05/JUL/2021 CYCLE 3 TO 6
     Route: 042
     Dates: start: 20210322
  4. TRASTUZUMAB [Suspect]
     Active Substance: TRASTUZUMAB
     Indication: HER2 positive breast cancer
     Dosage: LAST ADMINISTRATION PRIOR TO SAE ONSET ON 05/JUL/2021 CYCLE 1 TO 2
     Route: 058
     Dates: start: 20210322
  5. EPIRUBICIN [Suspect]
     Active Substance: EPIRUBICIN
     Indication: HER2 positive breast cancer
     Dosage: LAST ADMINISTRATED DOSE (175.5 MG ) PRIOR TO SAE ONSET ON 05/JUL/2021 (CYCLE 6)
     Route: 042
     Dates: start: 20210503
  6. NEBIVOLOL HYDROCHLORIDE [Concomitant]
     Active Substance: NEBIVOLOL HYDROCHLORIDE
     Indication: Hypertension
     Route: 048
     Dates: start: 20210413
  7. AMOXICILLIN\CLAVULANATE POTASSIUM [Concomitant]
     Active Substance: AMOXICILLIN\CLAVULANATE POTASSIUM
     Dosage: 875 MG/125 MG
     Route: 048
     Dates: start: 20210907, end: 20210913
  8. CIMETIDINE [Concomitant]
     Active Substance: CIMETIDINE
     Indication: Prophylaxis
     Route: 048
     Dates: start: 20210915

REACTIONS (1)
  - Immune-mediated hypophysitis [Recovering/Resolving]

NARRATIVE: CASE EVENT DATE: 20210913
